FAERS Safety Report 20650879 (Version 1)
Quarter: 2022Q1

REPORT INFORMATION
  Report Type: Spontaneous
  Country: FI (occurrence: FI)
  Receive Date: 20220329
  Receipt Date: 20220329
  Transmission Date: 20220423
  Serious: Yes (Hospitalization)
  Sender: FDA-Public Use
  Company Number: FI-BIOGEN-2022BI01106709

PATIENT
  Age: 72 Year
  Sex: Male

DRUGS (3)
  1. ADUCANUMAB [Suspect]
     Active Substance: ADUCANUMAB
     Indication: Dementia Alzheimer^s type
     Dosage: INFUSION 1
     Route: 065
     Dates: start: 20220107
  2. ADUCANUMAB [Suspect]
     Active Substance: ADUCANUMAB
     Dosage: INFUSION 2
     Route: 065
     Dates: start: 20220204
  3. ADUCANUMAB [Suspect]
     Active Substance: ADUCANUMAB
     Dosage: INFUSION 3
     Route: 065
     Dates: start: 20220304

REACTIONS (5)
  - Amyloid related imaging abnormality-oedema/effusion [Not Recovered/Not Resolved]
  - Amyloid related imaging abnormality-microhaemorrhages and haemosiderin deposits [Unknown]
  - Confusional state [Not Recovered/Not Resolved]
  - Mobility decreased [Unknown]
  - Dizziness postural [Unknown]

NARRATIVE: CASE EVENT DATE: 20220301
